FAERS Safety Report 8792912 (Version 2)
Quarter: 2012Q4

REPORT INFORMATION
  Report Type: 
  Country: US (occurrence: US)
  Receive Date: 20120918
  Receipt Date: 20120925
  Transmission Date: 20130627
  Serious: No
  Sender: FDA-Public Use
  Company Number: US-PFIZER INC-2012227165

PATIENT
  Age: 25 Year
  Sex: Female

DRUGS (1)
  1. RELPAX [Suspect]
     Indication: MIGRAINE
     Dosage: 40 mg, as needed
     Route: 048

REACTIONS (4)
  - Migraine [Unknown]
  - Migraine with aura [Unknown]
  - Photophobia [Unknown]
  - Nausea [Unknown]
